FAERS Safety Report 7922620-X (Version None)
Quarter: 2011Q4

REPORT INFORMATION
  Report Type: 
  Country: None (occurrence: None)
  Receive Date: 20111117
  Receipt Date: 20110124
  Transmission Date: 20120403
  Serious: No
  Sender: FDA-Public Use
  Company Number: US-AMGEN-USASP2011004176

PATIENT
  Age: 59 Year
  Sex: Female
  Weight: 74.376 kg

DRUGS (4)
  1. FUROSEMIDE [Concomitant]
     Dosage: 50 MG, UNK
  2. ATENOLOL [Concomitant]
     Dosage: 25 MG, UNK
  3. ENBREL [Suspect]
     Indication: PRODUCT USED FOR UNKNOWN INDICATION
     Dosage: 50 MG, QWK
     Route: 058
  4. KLOR-CON M10 [Concomitant]

REACTIONS (1)
  - RASH PRURITIC [None]
